FAERS Safety Report 9990264 (Version 1)
Quarter: 2014Q1

REPORT INFORMATION
  Report Type: Report from Study
  Country: US (occurrence: US)
  Receive Date: 20140310
  Receipt Date: 20140310
  Transmission Date: 20141002
  Serious: No
  Sender: FDA-Public Use
  Company Number: US-ABBVIE-13P-163-1131152-00

PATIENT
  Age: 23 Year
  Sex: Female

DRUGS (5)
  1. HUMIRA [Suspect]
     Indication: CROHN^S DISEASE
     Dates: start: 20130722, end: 20130722
  2. HUMIRA [Suspect]
     Dates: start: 20130805, end: 20130805
  3. HUMIRA [Suspect]
  4. PREDNISONE [Concomitant]
     Indication: CROHN^S DISEASE
     Dosage: 40 MG DAILY (TAPER)
     Dates: start: 20130722
  5. PREDNISONE [Concomitant]
     Dosage: 30 MG DAILY (TAPER)
     Dates: start: 20130804, end: 20130804

REACTIONS (3)
  - Constipation [Not Recovered/Not Resolved]
  - Abdominal pain [Not Recovered/Not Resolved]
  - Nausea [Not Recovered/Not Resolved]
